FAERS Safety Report 7801419-9 (Version None)
Quarter: 2011Q4

REPORT INFORMATION
  Report Type: 
  Country: None (occurrence: None)
  Receive Date: 20111006
  Receipt Date: 20111006
  Transmission Date: 20120403
  Serious: Yes (Hospitalization)
  Sender: FDA-Public Use
  Company Number: None

PATIENT
  Age: 42 Year
  Sex: Male
  Weight: 77.8 kg

DRUGS (4)
  1. ALBUTEROL [Concomitant]
  2. PAIN MED [Concomitant]
  3. LEVAQUIN [Suspect]
     Dosage: 500MG A DAY PO
     Route: 048
  4. IODINE [Concomitant]

REACTIONS (1)
  - TENDON RUPTURE [None]
